FAERS Safety Report 7181718 (Version 2)
Quarter: 2013Q4

REPORT INFORMATION
  Report Type: Spontaneous
  Country: US (occurrence: US)
  Receive Date: 20091119
  Receipt Date: 20131022
  Transmission Date: 20140711
  Serious: No
  Sender: FDA-Public Use
  Company Number: US-B.I. PHARMACEUTICALS,INC./RIDGEFIELD-2009-BP-13291BP

PATIENT
  Age: 80 Year
  Sex: Male
  Weight: 92.53 kg

DRUGS (3)
  1. SPIRIVA HANDIHALER [Suspect]
     Indication: ASBESTOSIS
     Dosage: 18 MCG
     Route: 055
     Dates: start: 2006
  2. SPIRIVA HANDIHALER [Suspect]
     Indication: BRONCHITIS CHRONIC
     Dosage: 18 MCG
     Route: 055
     Dates: start: 2004
  3. ADVAIR [Concomitant]
     Indication: ASBESTOSIS
     Dosage: DOSE PER APPLICATION:250MCG/50MCGL; DALIY DOSE 500MCG/100MCG
     Dates: start: 2004

REACTIONS (2)
  - Chest discomfort [Recovered/Resolved]
  - Dyspnoea [Recovered/Resolved]
